FAERS Safety Report 6679525-4 (Version None)
Quarter: 2010Q2

REPORT INFORMATION
  Report Type: 
  Country: None (occurrence: None)
  Receive Date: 20100413
  Receipt Date: 20100331
  Transmission Date: 20101027
  Serious: Yes (Other)
  Sender: FDA-Public Use
  Company Number: PHHY2010US10602

PATIENT
  Sex: Female

DRUGS (5)
  1. RECLAST [Suspect]
     Dosage: UNK, ONCE/SINGLE USE
     Route: 042
     Dates: start: 20100218, end: 20100218
  2. MYLANTA [Concomitant]
     Indication: GASTROOESOPHAGEAL REFLUX DISEASE
     Dosage: UNK
  3. NORVASC [Concomitant]
     Dosage: UNK, UNK
  4. TAGAMET [Concomitant]
     Dosage: UNK, UNK
  5. VITAMIN C [Concomitant]
     Dosage: UNK, UNK

REACTIONS (7)
  - CONFUSIONAL STATE [None]
  - COUGH [None]
  - DISORIENTATION [None]
  - HEADACHE [None]
  - LUNG NEOPLASM MALIGNANT [None]
  - METASTASES TO CENTRAL NERVOUS SYSTEM [None]
  - TOOTHACHE [None]
